FAERS Safety Report 17036487 (Version 1)
Quarter: 2019Q4

REPORT INFORMATION
  Report Type: Spontaneous
  Country: US (occurrence: US)
  Receive Date: 20191115
  Receipt Date: 20191115
  Transmission Date: 20200122
  Serious: No
  Sender: FDA-Public Use
  Company Number: US-009507513-1911USA002321

PATIENT
  Sex: Female

DRUGS (2)
  1. REMERON [Suspect]
     Active Substance: MIRTAZAPINE
     Indication: WEIGHT INCREASED
  2. REMERON [Suspect]
     Active Substance: MIRTAZAPINE
     Indication: INCREASED APPETITE
     Dosage: 15 MG ONCE A DAY
     Route: 048
     Dates: start: 20191104, end: 201911

REACTIONS (6)
  - Hypertension [Unknown]
  - Product use in unapproved indication [Unknown]
  - Blood cholesterol increased [Unknown]
  - Dizziness [Unknown]
  - Hyperhidrosis [Unknown]
  - Anxiety [Unknown]

NARRATIVE: CASE EVENT DATE: 201911
